FAERS Safety Report 17296445 (Version 1)
Quarter: 2020Q1

REPORT INFORMATION
  Report Type: Spontaneous
  Country: US (occurrence: US)
  Receive Date: 20200121
  Receipt Date: 20200121
  Transmission Date: 20200409
  Serious: Yes (Other)
  Sender: FDA-Public Use
  Company Number: US-AMGEN-USASP2020007782

PATIENT

DRUGS (1)
  1. SENSIPAR [Suspect]
     Active Substance: CINACALCET HYDROCHLORIDE
     Indication: HYPERPARATHYROIDISM TERTIARY
     Dosage: UNK
     Route: 065

REACTIONS (5)
  - Hypoparathyroidism [Unknown]
  - Dysphonia [Unknown]
  - Hungry bone syndrome [Unknown]
  - Paraesthesia [Unknown]
  - Hyperparathyroidism tertiary [Unknown]
